FAERS Safety Report 15545855 (Version 1)
Quarter: 2018Q4

REPORT INFORMATION
  Report Type: Spontaneous
  Country: US (occurrence: US)
  Receive Date: 20181023
  Receipt Date: 20181023
  Transmission Date: 20190205
  Serious: Yes (Hospitalization)
  Sender: FDA-Public Use
  Company Number: None

PATIENT
  Age: 84 Year
  Sex: Male
  Weight: 70.65 kg

DRUGS (10)
  1. CYANOCOBALAMIN 2500MCG [Concomitant]
  2. METOPROLOL SUCCINATE 25MG [Concomitant]
     Active Substance: METOPROLOL SUCCINATE
  3. WARFARIN 2.5MG [Concomitant]
     Active Substance: WARFARIN
  4. LEVEMIR 100UNIT/ML [Concomitant]
  5. DIGOX 125 MCG [Concomitant]
  6. NEPHROCAPS [Concomitant]
     Active Substance: ASCORBIC ACID\BIOTIN\CYANOCOBALAMIN\FOLIC ACID\NIACIN\PANTOTHENIC ACID\PYRIDOXINE\RIBOFLAVIN\THIAMINE
  7. PREDNISONE. [Concomitant]
     Active Substance: PREDNISONE
  8. RENOCAPS [Concomitant]
  9. ZYTIGA [Suspect]
     Active Substance: ABIRATERONE ACETATE
     Indication: PROSTATE CANCER
     Route: 048
     Dates: start: 20170302, end: 20181010
  10. MEGESTROL ACETATE 20MG [Concomitant]

REACTIONS (3)
  - Pneumonia [None]
  - Therapy cessation [None]
  - Back pain [None]

NARRATIVE: CASE EVENT DATE: 20181010
